FAERS Safety Report 9125688 (Version 1)
Quarter: 2013Q1

REPORT INFORMATION
  Report Type: Spontaneous
  Country: BR (occurrence: BR)
  Receive Date: 20130117
  Receipt Date: 20130117
  Transmission Date: 20140127
  Serious: Yes (Hospitalization)
  Sender: FDA-Public Use
  Company Number: BR-ASTRAZENECA-2013SE02542

PATIENT
  Age: 76 Year
  Sex: Male
  Weight: 69 kg

DRUGS (6)
  1. CRESTOR [Suspect]
     Route: 048
  2. MONOCORDIL [Concomitant]
     Route: 048
     Dates: start: 1987
  3. LOSARTA [Concomitant]
     Route: 048
     Dates: start: 1987
  4. RANITIDINA [Concomitant]
     Route: 048
     Dates: start: 1987
  5. SOMALGIN CARDIO [Concomitant]
     Route: 048
     Dates: start: 2009
  6. GLIFAGE [Concomitant]
     Indication: DIABETES MELLITUS
     Route: 048
     Dates: start: 2009

REACTIONS (1)
  - Coronary artery occlusion [Recovered/Resolved]
